FAERS Safety Report 14094076 (Version 1)
Quarter: 2017Q4

REPORT INFORMATION
  Report Type: Spontaneous
  Country: US (occurrence: US)
  Receive Date: 20171016
  Receipt Date: 20171016
  Transmission Date: 20180321
  Serious: No
  Sender: FDA-Public Use
  Company Number: US-ASTRAZENECA-2017SF04355

PATIENT
  Sex: Male

DRUGS (1)
  1. BRILINTA [Suspect]
     Active Substance: TICAGRELOR
     Indication: STENT PLACEMENT
     Route: 048

REACTIONS (7)
  - Increased tendency to bruise [Unknown]
  - Abnormal behaviour [Unknown]
  - Frustration tolerance decreased [Unknown]
  - Crying [Unknown]
  - Libido decreased [Unknown]
  - Product use issue [Unknown]
  - Emotional disorder [Unknown]
